FAERS Safety Report 9790825 (Version 3)
Quarter: 2014Q3

REPORT INFORMATION
  Report Type: Spontaneous
  Country: US (occurrence: US)
  Receive Date: 20131231
  Receipt Date: 20140829
  Transmission Date: 20150326
  Serious: Yes (Hospitalization)
  Sender: FDA-Public Use
  Company Number: US-009507513-1312USA012705

PATIENT
  Sex: Female
  Weight: 53.97 kg

DRUGS (1)
  1. NUVARING [Suspect]
     Active Substance: ETHINYL ESTRADIOL\ETONOGESTREL
     Indication: CONTRACEPTION
     Dosage: 0.12 MG-0.015 MG/24 HRS
     Route: 067
     Dates: end: 20110830

REACTIONS (6)
  - Syncope [Recovered/Resolved]
  - Sinusitis [Recovered/Resolved]
  - Intracranial venous sinus thrombosis [Unknown]
  - Pain in extremity [Recovered/Resolved]
  - International normalised ratio increased [Unknown]
  - Migraine [Unknown]

NARRATIVE: CASE EVENT DATE: 20110830
